FAERS Safety Report 24253303 (Version 1)
Quarter: 2024Q3

REPORT INFORMATION
  Report Type: Spontaneous
  Country: PL (occurrence: PL)
  Receive Date: 20240827
  Receipt Date: 20240827
  Transmission Date: 20241016
  Serious: Yes (Hospitalization)
  Sender: RANBAXY
  Company Number: PL-SUN PHARMACEUTICAL INDUSTRIES LTD-2024R1-464532

PATIENT
  Age: 72 Year
  Sex: Male

DRUGS (2)
  1. DEXAMETHASONE [Suspect]
     Active Substance: DEXAMETHASONE
     Indication: Plasma cell myeloma
     Dosage: 20 MILLIGRAM, 1, 4, 8, AND11 OF A 21-DAY TREATMENT CYCLE
     Route: 065
  2. BORTEZOMIB [Concomitant]
     Active Substance: BORTEZOMIB
     Indication: Plasma cell myeloma
     Dosage: 1.3 MILLIGRAM/SQ. METER,  1, 4, 8, AND11 OF A 21-DAY TREATMENT CYCLE
     Route: 058

REACTIONS (3)
  - Anaemia [Recovering/Resolving]
  - Haemorrhage [Recovering/Resolving]
  - Dizziness [Recovering/Resolving]
